FAERS Safety Report 4681008-8 (Version None)
Quarter: 2005Q2

REPORT INFORMATION
  Report Type: 
  Country: None (occurrence: None)
  Receive Date: 20050603
  Receipt Date: 20050509
  Transmission Date: 20051028
  Serious: Yes (Disabling)
  Sender: FDA-Public Use
  Company Number: 200514512GDDC

PATIENT
  Age: 40 Year
  Sex: Female
  Weight: 111 kg

DRUGS (2)
  1. LANTUS [Suspect]
     Route: 058
     Dates: start: 20050425
  2. GLUCOPHAGE [Concomitant]
     Route: 048
     Dates: start: 20050425

REACTIONS (3)
  - BACK PAIN [None]
  - HEADACHE [None]
  - NAUSEA [None]
